FAERS Safety Report 15266656 (Version 2)
Quarter: 2018Q3

REPORT INFORMATION
  Report Type: Spontaneous
  Country: JP (occurrence: JP)
  Receive Date: 20180810
  Receipt Date: 20180813
  Transmission Date: 20181010
  Serious: Yes (Hospitalization, Other)
  Sender: FDA-Public Use
  Company Number: JP-PFIZER INC-2018318728

PATIENT
  Age: 71 Year
  Sex: Male

DRUGS (3)
  1. SPIRONOLACTONE. [Suspect]
     Active Substance: SPIRONOLACTONE
     Dosage: 50 MG/DAY
     Route: 048
  2. ELIQUIS [Suspect]
     Active Substance: APIXABAN
     Dosage: 2.5 MG/DAY
     Route: 048
  3. TORASEMIDE [Suspect]
     Active Substance: TORSEMIDE
     Dosage: 4 MG/DAY
     Route: 048

REACTIONS (2)
  - Enteropathy-associated T-cell lymphoma [Unknown]
  - Off label use [Unknown]
